FAERS Safety Report 7109977-7 (Version None)
Quarter: 2010Q4

REPORT INFORMATION
  Report Type: 
  Country: None (occurrence: None)
  Receive Date: 20101112
  Receipt Date: 20101027
  Transmission Date: 20110411
  Serious: Yes (Death)
  Sender: FDA-Public Use
  Company Number: 1-19336303

PATIENT
  Age: 75 Year
  Sex: Male
  Weight: 77.1115 kg

DRUGS (16)
  1. QUININE SULFATE [Suspect]
     Indication: MUSCLE SPASMS
     Dosage: AS NEEDED, ORAL
     Route: 048
     Dates: start: 20040205
  2. QUININE SULFATE [Suspect]
     Indication: MUSCLE SPASMS
     Dosage: AS NEEDED, ORAL
     Route: 048
     Dates: start: 20070604
  3. QUININE SULFATE [Suspect]
     Indication: MUSCLE SPASMS
     Dosage: AS NEEDED
     Dates: start: 20061002
  4. QUININE SULFATE [Suspect]
     Indication: MUSCLE SPASMS
     Dosage: AS NEEDED
     Dates: start: 20031208
  5. AMPICILLIN [Concomitant]
  6. PREVACID [Concomitant]
  7. XALATAN [Concomitant]
  8. CELEBREX [Concomitant]
  9. AVALIDE (HYDROCHLOROTHIAZIDE AND IRBESARTAN) [Concomitant]
  10. PROPOXYN-N [Concomitant]
  11. TRAMADOL [Concomitant]
  12. HYDROXYZINE [Concomitant]
  13. FERREX IRON SUPPLEMENT [Concomitant]
  14. FLOMAX [Concomitant]
  15. DIPHENOXYLATE HCL + ATROPINE SULFATE [Concomitant]
  16. SKELAXIN [Concomitant]

REACTIONS (6)
  - COAGULOPATHY [None]
  - HAEMORRHAGE [None]
  - RENAL DISORDER [None]
  - RENAL FAILURE ACUTE [None]
  - RENAL FAILURE CHRONIC [None]
  - WEIGHT DECREASED [None]
